FAERS Safety Report 16083796 (Version 1)
Quarter: 2019Q2

REPORT INFORMATION
  Report Type: Spontaneous
  Country: US (occurrence: US)
  Receive Date: 20190315
  Receipt Date: 20190315
  Transmission Date: 20190711
  Serious: Yes (Death)
  Sender: FDA-Public Use
  Company Number: None

PATIENT
  Age: 69 Year
  Sex: Male

DRUGS (10)
  1. PRIVIGEN [Suspect]
     Active Substance: HUMAN IMMUNOGLOBULIN G
     Indication: HYPOGAMMAGLOBULINAEMIA
     Dosage: ?          OTHER FREQUENCY:EVERY 2 WEEKS;?
     Route: 042
     Dates: start: 20190212, end: 20190212
  2. HYDRALAZINE [Concomitant]
     Active Substance: HYDRALAZINE HYDROCHLORIDE
     Dates: end: 20190226
  3. XIFAXAN [Concomitant]
     Active Substance: RIFAXIMIN
     Dates: end: 20190226
  4. MONTELUKAST [Concomitant]
     Active Substance: MONTELUKAST SODIUM
     Dates: end: 20190226
  5. OXYCODONE [Concomitant]
     Active Substance: OXYCODONE
     Dates: end: 20190226
  6. LISINOPRIL. [Concomitant]
     Active Substance: LISINOPRIL
     Dates: end: 20190226
  7. LEVOTHYROXINE. [Concomitant]
     Active Substance: LEVOTHYROXINE
     Dates: end: 20190226
  8. ROPINIROLE. [Concomitant]
     Active Substance: ROPINIROLE
     Dates: end: 20190226
  9. PANTOPRAZOLE [Concomitant]
     Active Substance: PANTOPRAZOLE
     Dates: end: 20190226
  10. TAMSULOSIN [Concomitant]
     Active Substance: TAMSULOSIN
     Dates: end: 20190226

REACTIONS (1)
  - Death [None]

NARRATIVE: CASE EVENT DATE: 20190226
